FAERS Safety Report 5102795-0 (Version None)
Quarter: 2006Q3

REPORT INFORMATION
  Report Type: 
  Country: None (occurrence: None)
  Receive Date: 20060907
  Receipt Date: 20060831
  Transmission Date: 20061208
  Serious: Yes (Other)
  Sender: FDA-Public Use
  Company Number: 028-20785-06081223

PATIENT
  Sex: Female

DRUGS (6)
  1. THALOMID [Suspect]
     Indication: MULTIPLE MYELOMA
     Dosage: 200 MG, 1 IN 1 D; ORAL
     Route: 048
     Dates: start: 20060518, end: 20060808
  2. THALOMID [Suspect]
     Indication: MULTIPLE MYELOMA
     Dosage: 200 MG, 1 IN 1 D; ORAL
     Route: 048
     Dates: start: 20060818
  3. PREDNISONE TAB [Suspect]
     Indication: MULTIPLE MYELOMA
     Dosage: 50 MG, 1 IN 2 D,
     Dates: start: 20060518
  4. SEPTRA DS (BACTRIM) (TABLETS) [Concomitant]
  5. ASPIRIN [Concomitant]
  6. METOPROLOL [Concomitant]

REACTIONS (6)
  - ANOSMIA [None]
  - GLOSSODYNIA [None]
  - HYPOGEUSIA [None]
  - ORAL CANDIDIASIS [None]
  - PRODUCTIVE COUGH [None]
  - RESPIRATORY TRACT INFECTION [None]
